FAERS Safety Report 10207926 (Version 1)
Quarter: 2014Q2

REPORT INFORMATION
  Report Type: Spontaneous
  Country: US (occurrence: US)
  Receive Date: 20140530
  Receipt Date: 20140530
  Transmission Date: 20141212
  Serious: No
  Sender: FDA-Public Use
  Company Number: US-GLAXOSMITHKLINE-A1065399A

PATIENT
  Sex: Female

DRUGS (4)
  1. VENTOLIN [Suspect]
     Indication: DYSPNOEA EXERTIONAL
     Dosage: 2PUFF AS REQUIRED
     Route: 055
     Dates: start: 201203
  2. ALBUTEROL NEBULIZER [Concomitant]
  3. MONTELUKAST [Concomitant]
  4. SIMVASTATIN [Concomitant]

REACTIONS (3)
  - Bronchitis [Recovering/Resolving]
  - Wheezing [Recovering/Resolving]
  - Dyspnoea [Recovered/Resolved]
